FAERS Safety Report 7339574-X (Version None)
Quarter: 2011Q1

REPORT INFORMATION
  Report Type: 
  Country: None (occurrence: None)
  Receive Date: 20110308
  Receipt Date: 20110303
  Transmission Date: 20110831
  Serious: No
  Sender: FDA-Public Use
  Company Number: US-AMGEN-USASP2010000495

PATIENT
  Age: 71 Year
  Sex: Female

DRUGS (3)
  1. HYDROCODONE BITARTRATE AND ACETAMINOPHEN [Concomitant]
  2. PROLIA [Suspect]
     Indication: OSTEOPOROSIS POSTMENOPAUSAL
     Dosage: 60 MG, Q6MO
     Dates: start: 20101014
  3. EYE DROPS [Concomitant]

REACTIONS (9)
  - INFLUENZA [None]
  - BRONCHITIS [None]
  - ANXIETY [None]
  - DECREASED INTEREST [None]
  - HYPERHIDROSIS [None]
  - BACK PAIN [None]
  - RHINITIS ALLERGIC [None]
  - ABNORMAL DREAMS [None]
  - INSOMNIA [None]
